FAERS Safety Report 20891516 (Version 1)
Quarter: 2022Q2

REPORT INFORMATION
  Report Type: Report from Study
  Country: JP (occurrence: JP)
  Receive Date: 20220530
  Receipt Date: 20220530
  Transmission Date: 20220720
  Serious: Yes (Hospitalization)
  Sender: FDA-Public Use
  Company Number: JP-CHUGAI-2022019125

PATIENT
  Age: 47 Year
  Sex: Male
  Weight: 54 kg

DRUGS (5)
  1. ALECTINIB [Suspect]
     Active Substance: ALECTINIB
     Indication: Lung adenocarcinoma
     Dosage: 300 MILLIGRAM, BID
     Route: 048
     Dates: start: 20210126
  2. ALPRAZOLAM [Concomitant]
     Active Substance: ALPRAZOLAM
     Indication: Anxiety
     Dosage: 0.4 MILLIGRAM
     Route: 048
     Dates: start: 20201127
  3. MAGNESIUM OXIDE [Concomitant]
     Active Substance: MAGNESIUM OXIDE
     Indication: Constipation prophylaxis
     Dosage: 330 MILLIGRAM, PRN
     Route: 048
  4. ALLEGRA [FEXOFENADINE HYDROCHLORIDE] [Concomitant]
     Indication: Seasonal allergy
     Dosage: 1 DOSAGE FORM, PRN
     Route: 048
     Dates: start: 202002
  5. LOXOPROFEN SODIUM [Concomitant]
     Active Substance: LOXOPROFEN SODIUM
     Indication: Intervertebral disc protrusion
     Dosage: 60 MILLIGRAM, PRN
     Route: 048
     Dates: start: 20220122

REACTIONS (1)
  - Gastroenteritis [Recovered/Resolved]

NARRATIVE: CASE EVENT DATE: 20220509
